FAERS Safety Report 22299434 (Version 1)
Quarter: 2023Q2

REPORT INFORMATION
  Report Type: Spontaneous
  Country: US (occurrence: US)
  Receive Date: 20230509
  Receipt Date: 20230509
  Transmission Date: 20230721
  Serious: Yes (Hospitalization, Other)
  Sender: FDA-Public Use
  Company Number: US-BoehringerIngelheim-2023-BI-235265

PATIENT
  Age: 55 Year
  Sex: Male

DRUGS (1)
  1. DABIGATRAN [Suspect]
     Active Substance: DABIGATRAN
     Indication: Product used for unknown indication

REACTIONS (6)
  - Nephropathy toxic [Unknown]
  - Haemorrhage [Unknown]
  - Renal tubular necrosis [Unknown]
  - Hepatosplenomegaly [Unknown]
  - IgA nephropathy [Unknown]
  - Tubulointerstitial nephritis [Unknown]
